FAERS Safety Report 7396820-4 (Version None)
Quarter: 2011Q1

REPORT INFORMATION
  Report Type: 
  Country: None (occurrence: None)
  Receive Date: 20110331
  Receipt Date: 20110331
  Transmission Date: 20110831
  Serious: Yes (Other)
  Sender: FDA-Public Use
  Company Number: None

PATIENT
  Age: 67 Year
  Sex: Male
  Weight: 103.4201 kg

DRUGS (11)
  1. ALBUTEROL [Concomitant]
  2. ASPIRIN [Concomitant]
  3. CERTIRIZINE [Concomitant]
  4. FLUTICASONE [Concomitant]
  5. CRESTOR [Suspect]
     Indication: CORONARY ARTERY DISEASE
     Dosage: 1 TABLET DAILY PO
     Route: 048
     Dates: start: 20101119, end: 20110216
  6. CRESTOR [Suspect]
     Indication: HYPERLIPIDAEMIA
     Dosage: 1 TABLET DAILY PO
     Route: 048
     Dates: start: 20101119, end: 20110216
  7. COQ10 [Concomitant]
  8. CHOLECALCIFEROL [Concomitant]
  9. M.V.I. [Concomitant]
  10. NTG SL [Concomitant]
  11. OMEGA 3 FATTY ACID - FISH OIL- [Concomitant]

REACTIONS (2)
  - FEELING ABNORMAL [None]
  - MEMORY IMPAIRMENT [None]
